FAERS Safety Report 9832690 (Version 1)
Quarter: 2014Q1

REPORT INFORMATION
  Report Type: Spontaneous
  Country: IT (occurrence: IT)
  Receive Date: 20140121
  Receipt Date: 20140121
  Transmission Date: 20141002
  Serious: Yes (Life-Threatening)
  Sender: FDA-Public Use
  Company Number: IT-PFIZER INC-2014012485

PATIENT
  Age: 60 Year
  Sex: Female

DRUGS (2)
  1. CISPLATIN TEVA [Suspect]
     Indication: LUNG NEOPLASM MALIGNANT
     Dosage: 125 MG PER DAY, CYCLIC
     Route: 042
     Dates: start: 20130913, end: 20140103
  2. ALIMTA [Suspect]
     Indication: LUNG NEOPLASM MALIGNANT
     Dosage: 850 MG PER DAY, CYCLIC
     Route: 042
     Dates: start: 20130913, end: 20140103

REACTIONS (4)
  - Face oedema [Recovering/Resolving]
  - Lip oedema [Recovering/Resolving]
  - Rash [Recovering/Resolving]
  - Pruritus generalised [Recovering/Resolving]
